FAERS Safety Report 13041563 (Version 3)
Quarter: 2017Q1

REPORT INFORMATION
  Report Type: Spontaneous
  Country: JP (occurrence: JP)
  Receive Date: 20161219
  Receipt Date: 20170329
  Transmission Date: 20170428
  Serious: Yes (Death, Life-Threatening, Hospitalization, Other)
  Sender: FDA-Public Use
  Company Number: JP-PFIZER INC-2016454163

PATIENT
  Age: 78 Year
  Sex: Male
  Weight: 41 kg

DRUGS (15)
  1. BFLUID [Concomitant]
     Active Substance: AMINO ACIDS\DEXTROSE\ELECTROLYTES NOS\VITAMINS
     Dosage: UNK
     Route: 041
  2. EFIENT [Concomitant]
     Active Substance: PRASUGREL HYDROCHLORIDE
     Dosage: 3.75 MG, UNK
     Route: 048
  3. DONEPEZIL. [Concomitant]
     Active Substance: DONEPEZIL
     Dosage: 5 MG, UNK
     Route: 048
  4. MEMARY [Concomitant]
     Active Substance: MEMANTINE HYDROCHLORIDE
     Dosage: 10 MG, UNK
     Route: 048
  5. NEXIUM [Concomitant]
     Active Substance: ESOMEPRAZOLE MAGNESIUM
     Dosage: 20 MG, UNK
     Route: 048
  6. VFEND [Suspect]
     Active Substance: VORICONAZOLE
     Dosage: 180 MG, 2X/DAY
     Route: 040
     Dates: start: 20160911, end: 20160927
  7. WAKADENIN [Concomitant]
     Dosage: UNK
     Route: 041
  8. URIEF [Concomitant]
     Active Substance: SILODOSIN
     Dosage: 4 MG, UNK
     Route: 048
  9. LEVOFLOXACIN /01278903/ [Concomitant]
     Active Substance: LEVOFLOXACIN
     Dosage: UNK
  10. BAYASPIRIN [Concomitant]
     Active Substance: ASPIRIN
     Dosage: 100 MG, UNK
     Route: 048
  11. DAIVITAMIX [Concomitant]
     Dosage: UNK
     Route: 041
  12. BEPRICOR [Concomitant]
     Active Substance: BEPRIDIL
     Dosage: 50 MG, UNK
     Route: 048
  13. ASCORBIC [Concomitant]
     Dosage: UNK
     Route: 041
  14. BICALUTAMIDE. [Concomitant]
     Active Substance: BICALUTAMIDE
     Dosage: 80 MG, UNK
     Route: 048
  15. VFEND [Suspect]
     Active Substance: VORICONAZOLE
     Indication: MYCOTIC ENDOPHTHALMITIS
     Dosage: 260 MG, 2X/DAY
     Route: 040
     Dates: start: 20160909, end: 20160910

REACTIONS (4)
  - Mycotic endophthalmitis [Unknown]
  - Acute coronary syndrome [Fatal]
  - Drug level increased [Unknown]
  - Condition aggravated [Unknown]

NARRATIVE: CASE EVENT DATE: 2016
